FAERS Safety Report 7963353-3 (Version None)
Quarter: 2011Q4

REPORT INFORMATION
  Report Type: 
  Country: None (occurrence: None)
  Receive Date: 20111122
  Receipt Date: 20110803
  Transmission Date: 20120403
  Serious: Yes (Hospitalization)
  Sender: FDA-Public Use
  Company Number: PHHY2011US63186

PATIENT
  Age: 43 Year
  Sex: Female

DRUGS (8)
  1. PROVIGIL (MODAFANIL) [Concomitant]
  2. VIT B12 (CYANOCOBALAMIN) [Concomitant]
  3. GILENYA [Suspect]
     Indication: MULTIPLE SCLEROSIS
     Dosage: 0.5 MG, DAILY, ORAL
     Route: 048
     Dates: start: 20110102, end: 20110701
  4. PAROXETINE HCL [Concomitant]
  5. LAMOTRIGINE [Concomitant]
  6. CALTRATE(CALCIUM CARBONATE) [Interacting]
  7. VIT D (ERGOCALCIFDEROL) [Concomitant]
  8. CITALOPRAM [Concomitant]

REACTIONS (4)
  - MUCOSAL INFECTION [None]
  - LEUKOPENIA [None]
  - URINARY TRACT INFECTION [None]
  - WHITE BLOOD CELL COUNT DECREASED [None]
